FAERS Safety Report 15835904 (Version 5)
Quarter: 2019Q2

REPORT INFORMATION
  Report Type: Spontaneous
  Country: JP (occurrence: JP)
  Receive Date: 20190117
  Receipt Date: 20190412
  Transmission Date: 20190711
  Serious: Yes (Life-Threatening, Hospitalization, Other)
  Sender: FDA-Public Use
  Company Number: JP-KYOWAKIRIN-2019AKK000285

PATIENT

DRUGS (32)
  1. FENOFIBRATE. [Concomitant]
     Active Substance: FENOFIBRATE
     Dosage: 80 MG, QD, AFTER BREAKFAST
     Route: 048
  2. TEICOPLANIN [Concomitant]
     Active Substance: TEICOPLANIN
     Dosage: UNK
     Route: 065
     Dates: start: 20181214, end: 20181218
  3. ETOPOSIDE. [Suspect]
     Active Substance: ETOPOSIDE
     Indication: ADULT T-CELL LYMPHOMA/LEUKAEMIA
     Dosage: 100 MG/M2
     Route: 065
     Dates: start: 20181205, end: 20181207
  4. PREDNISOLONE. [Concomitant]
     Active Substance: PREDNISOLONE
     Dosage: 20 MG
     Route: 065
     Dates: start: 20190114, end: 20190120
  5. DAIPHEN [Suspect]
     Active Substance: SULFAMETHOXAZOLE\TRIMETHOPRIM
     Indication: ANTIFUNGAL PROPHYLAXIS
     Dosage: UNK UNK, 3X/WEEK
     Route: 048
     Dates: start: 20181128, end: 20190104
  6. PREDNISOLONE. [Concomitant]
     Active Substance: PREDNISOLONE
     Dosage: 40 MG
     Route: 065
     Dates: start: 20181112
  7. PREDNISOLONE. [Concomitant]
     Active Substance: PREDNISOLONE
     Dosage: 20 MG
     Route: 065
     Dates: start: 20190104, end: 20190107
  8. DIPHENHYDRAMINE. [Concomitant]
     Active Substance: DIPHENHYDRAMINE
     Dosage: UNK
     Route: 065
  9. LANSOPRAZOLE. [Concomitant]
     Active Substance: LANSOPRAZOLE
     Dosage: UNK
     Route: 065
  10. CEFEPIME [Concomitant]
     Active Substance: CEFEPIME HYDROCHLORIDE
     Dosage: UNK
     Route: 065
     Dates: start: 20181210
  11. TEPRENONE [Suspect]
     Active Substance: TEPRENONE
     Indication: ABDOMINAL PAIN UPPER
     Dosage: 50 MG, QD
     Route: 048
     Dates: start: 20181213, end: 20190104
  12. DEXAMETHASONE. [Suspect]
     Active Substance: DEXAMETHASONE
     Indication: ADULT T-CELL LYMPHOMA/LEUKAEMIA
     Dosage: 1.0 MG
     Route: 065
     Dates: start: 20181205, end: 20181207
  13. DEXAMETHASONE. [Suspect]
     Active Substance: DEXAMETHASONE
     Dosage: 3.3 MG
     Route: 065
     Dates: start: 20181128, end: 20181128
  14. PREDNISOLONE. [Concomitant]
     Active Substance: PREDNISOLONE
     Dosage: 15 MG
     Route: 065
     Dates: start: 20190121, end: 20190214
  15. NORMAL SALINE [Concomitant]
     Active Substance: SODIUM CHLORIDE
     Indication: HYPERCALCAEMIA
     Dosage: UNK
     Route: 065
  16. VITAMIN B1 [Concomitant]
     Active Substance: THIAMINE HYDROCHLORIDE
     Dosage: UNK
     Route: 065
  17. TAKECAB [Suspect]
     Active Substance: VONOPRAZAN FUMURATE
     Indication: ABDOMINAL PAIN UPPER
     Dosage: 20 MG, QD
     Route: 048
     Dates: start: 20181213, end: 20190104
  18. BETAMETHASONE. [Concomitant]
     Active Substance: BETAMETHASONE
     Dosage: 1.5 MG
     Route: 048
  19. ELCATONIN [Concomitant]
     Active Substance: ELCATONIN
     Indication: HYPERCALCAEMIA
     Dosage: UNK
     Route: 065
  20. POTELIGEO [Suspect]
     Active Substance: MOGAMULIZUMAB-KPKC
     Indication: ADULT T-CELL LYMPHOMA/LEUKAEMIA
     Dosage: 1 MG/KG
     Route: 041
     Dates: start: 20181207, end: 20181207
  21. FEBURIC [Suspect]
     Active Substance: FEBUXOSTAT
     Indication: HYPERURICAEMIA
     Dosage: 20 MG, QD
     Route: 048
     Dates: start: 20181122, end: 20190104
  22. PREDNISOLONE. [Concomitant]
     Active Substance: PREDNISOLONE
     Dosage: 10 MG
     Route: 065
     Dates: start: 20190215
  23. HYDROCORTONE                       /00028603/ [Concomitant]
     Active Substance: HYDROCORTISONE SODIUM PHOSPHATE
     Dosage: UNK
     Route: 065
  24. MINODRONIC ACID [Concomitant]
     Active Substance: MINODRONIC ACID
     Dosage: 50 MG, QD, RIGHT AFTER WAKING UP
     Route: 048
  25. BETAMETHASONE. [Concomitant]
     Active Substance: BETAMETHASONE
     Dosage: 0.5 MG, QD, AFTER BREAKFAST
     Route: 048
  26. CARBOPLATIN. [Suspect]
     Active Substance: CARBOPLATIN
     Indication: ADULT T-CELL LYMPHOMA/LEUKAEMIA
     Dosage: 250 MG/M2
     Route: 065
     Dates: start: 20181205, end: 20181205
  27. PREDNISOLONE. [Concomitant]
     Active Substance: PREDNISOLONE
     Dosage: 30 MG
     Route: 065
     Dates: start: 20190108, end: 20190113
  28. BENZBROMARONE [Concomitant]
     Active Substance: BENZBROMARONE
     Dosage: 25 MG, QD, AFTER BREAKFAST
     Route: 048
  29. ACETAMINOPHEN. [Concomitant]
     Active Substance: ACETAMINOPHEN
     Dosage: 300 MG, BID, AFTER BREAKFAST AND DINNER
     Route: 048
  30. ROZEREM [Concomitant]
     Active Substance: RAMELTEON
     Dosage: 8 MG, QD, AT BEDTIME
     Route: 048
  31. VINDESINE [Suspect]
     Active Substance: VINDESINE
     Indication: ADULT T-CELL LYMPHOMA/LEUKAEMIA
     Dosage: 2.4 MG/M2
     Route: 065
     Dates: start: 20181205, end: 20181205
  32. FLAGYL [Concomitant]
     Active Substance: METRONIDAZOLE\METRONIDAZOLE HYDROCHLORIDE
     Indication: CLOSTRIDIUM TEST POSITIVE
     Dosage: UNK
     Route: 065
     Dates: start: 20181216

REACTIONS (5)
  - Clostridium test positive [Recovering/Resolving]
  - Bone marrow failure [Recovering/Resolving]
  - Mental disorder [Unknown]
  - Abdominal pain upper [Unknown]
  - Stevens-Johnson syndrome [Recovering/Resolving]

NARRATIVE: CASE EVENT DATE: 20181207
